FAERS Safety Report 19187418 (Version 1)
Quarter: 2021Q2

REPORT INFORMATION
  Report Type: Spontaneous
  Country: ES (occurrence: ES)
  Receive Date: 20210428
  Receipt Date: 20210428
  Transmission Date: 20210717
  Serious: Yes (Disabling)
  Sender: FDA-Public Use
  Company Number: ES-TEVA-2021-ES-1904212

PATIENT
  Age: 29 Year
  Sex: Male
  Weight: 78 kg

DRUGS (1)
  1. FINASTERIDE. [Suspect]
     Active Substance: FINASTERIDE
     Indication: ALOPECIA
     Dosage: 1 MILLIGRAM DAILY;
     Route: 048
     Dates: start: 20120601, end: 20121201

REACTIONS (8)
  - Suicidal ideation [Recovering/Resolving]
  - Anxiety [Recovering/Resolving]
  - Disturbance in attention [Recovering/Resolving]
  - Depression [Recovering/Resolving]
  - Anhedonia [Recovering/Resolving]
  - Panic reaction [Recovering/Resolving]
  - Erectile dysfunction [Recovering/Resolving]
  - Semen analysis abnormal [Recovering/Resolving]

NARRATIVE: CASE EVENT DATE: 2012
